FAERS Safety Report 9196515 (Version 1)
Quarter: 2013Q1

REPORT INFORMATION
  Report Type: Spontaneous
  Country: BR (occurrence: BR)
  Receive Date: 20130328
  Receipt Date: 20130328
  Transmission Date: 20140127
  Serious: Yes (Death)
  Sender: FDA-Public Use
  Company Number: BR-PFIZER INC-2013098864

PATIENT
  Age: 53 Year
  Sex: Female

DRUGS (1)
  1. CELEBRA [Suspect]
     Indication: PAIN
     Dosage: 200 MG (ONE CAPSULE), 1X/DAY
     Route: 048
     Dates: start: 20120611

REACTIONS (1)
  - Infarction [Fatal]
